FAERS Safety Report 7409623-9 (Version None)
Quarter: 2011Q2

REPORT INFORMATION
  Report Type: 
  Country: None (occurrence: None)
  Receive Date: 20110407
  Receipt Date: 20110407
  Transmission Date: 20111010
  Serious: No
  Sender: FDA-Public Use
  Company Number: None

PATIENT
  Age: 81 Year
  Sex: Male
  Weight: 75 kg

DRUGS (1)
  1. OXACILLIN [Suspect]
     Dosage: 2 GM OTHER IV
     Route: 042
     Dates: start: 20080703, end: 20080707

REACTIONS (2)
  - PYREXIA [None]
  - RASH [None]
